FAERS Safety Report 17804248 (Version 1)
Quarter: 2020Q2

REPORT INFORMATION
  Report Type: Spontaneous
  Country: CZ (occurrence: CZ)
  Receive Date: 20200519
  Receipt Date: 20200519
  Transmission Date: 20200714
  Serious: Yes (Life-Threatening, Hospitalization)
  Sender: FDA-Public Use
  Company Number: NVSC2020CZ136263

PATIENT
  Age: 6 Day
  Sex: Male
  Weight: 3.71 kg

DRUGS (2)
  1. SIMBRINZA [Suspect]
     Active Substance: BRIMONIDINE TARTRATE\BRINZOLAMIDE
     Indication: ANTERIOR CHAMBER CLEAVAGE SYNDROME
     Dosage: 1 GTT, Q12H (2X1GTT TO LEFT EYE)
     Route: 047
     Dates: start: 20200217, end: 20200219
  2. FLUCON [Concomitant]
     Indication: ANTERIOR CHAMBER CLEAVAGE SYNDROME
     Dosage: 1 GTT, Q8H (3X1GTT TO LEFT EYE)
     Route: 047
     Dates: start: 20200217, end: 20200219

REACTIONS (4)
  - Sopor [Recovered/Resolved]
  - Off label use [Unknown]
  - Somnolence [Recovered/Resolved]
  - Bradycardia [Recovered/Resolved]

NARRATIVE: CASE EVENT DATE: 20200218
